FAERS Safety Report 8933831 (Version 3)
Quarter: 2013Q4

REPORT INFORMATION
  Report Type: Spontaneous
  Country: US (occurrence: US)
  Receive Date: 20121129
  Receipt Date: 20131210
  Transmission Date: 20140711
  Serious: Yes (Other)
  Sender: FDA-Public Use
  Company Number: US-ROCHE-786601

PATIENT
  Age: 16 Year
  Sex: Female
  Weight: 56.75 kg

DRUGS (3)
  1. ACCUTANE [Suspect]
     Indication: ACNE
     Route: 065
     Dates: start: 1998, end: 2000
  2. ASPIRIN [Concomitant]
  3. TYLENOL [Concomitant]

REACTIONS (14)
  - Crohn^s disease [Unknown]
  - Inflammatory bowel disease [Unknown]
  - Intestinal haemorrhage [Unknown]
  - Anal fistula [Unknown]
  - Anal abscess [Unknown]
  - Anal fissure [Unknown]
  - Rectal polyp [Unknown]
  - Depression [Unknown]
  - Rash [Unknown]
  - Dry skin [Unknown]
  - Back pain [Unknown]
  - Hirsutism [Unknown]
  - Iron deficiency anaemia [Unknown]
  - Pharyngitis [Unknown]
